FAERS Safety Report 7652722-7 (Version None)
Quarter: 2011Q3

REPORT INFORMATION
  Report Type: 
  Country: None (occurrence: None)
  Receive Date: 20110803
  Receipt Date: 20110721
  Transmission Date: 20111222
  Serious: Yes (Other)
  Sender: FDA-Public Use
  Company Number: US-BAYER-2011-067057

PATIENT
  Sex: Female

DRUGS (1)
  1. MIRENA [Suspect]
     Dosage: 20 MCG/24HR, CONT
     Route: 015
     Dates: start: 20110215

REACTIONS (15)
  - VULVOVAGINAL PRURITUS [None]
  - ACNE [None]
  - IRRITABILITY [None]
  - PAIN [None]
  - GENITAL HAEMORRHAGE [None]
  - PAIN IN EXTREMITY [None]
  - DYSPAREUNIA [None]
  - VULVOVAGINAL BURNING SENSATION [None]
  - VULVOVAGINAL SWELLING [None]
  - PATIENT-DEVICE INCOMPATIBILITY [None]
  - NAUSEA [None]
  - DEPRESSION [None]
  - INFECTION [None]
  - VULVOVAGINAL DISCOMFORT [None]
  - ABDOMINAL PAIN [None]
